FAERS Safety Report 18173679 (Version 1)
Quarter: 2020Q3

REPORT INFORMATION
  Report Type: Spontaneous
  Country: CN (occurrence: CN)
  Receive Date: 20200820
  Receipt Date: 20200820
  Transmission Date: 20201103
  Serious: Yes (Other)
  Sender: FDA-Public Use
  Company Number: CN-BAXTER-2020BAX016681

PATIENT
  Age: 43 Year
  Sex: Male
  Weight: 63 kg

DRUGS (2)
  1. ENDOXAN [Suspect]
     Active Substance: CYCLOPHOSPHAMIDE
     Indication: SYSTEMIC LUPUS ERYTHEMATOSUS
     Dosage: ENDOXAN 600 MG + 0.9% SODIUM CHLORIDE 250 ML
     Route: 041
     Dates: start: 20200725, end: 20200725
  2. 0.9% SODIUM CHLORIDE INJECTION [Suspect]
     Active Substance: SODIUM CHLORIDE
     Indication: MEDICATION DILUTION
     Dosage: ENDOXAN 600 MG + 0.9% SODIUM CHLORIDE 250 ML
     Route: 041
     Dates: start: 20200725, end: 20200725

REACTIONS (1)
  - White blood cell count decreased [Recovering/Resolving]

NARRATIVE: CASE EVENT DATE: 20200731
